FAERS Safety Report 13789245 (Version 1)
Quarter: 2017Q3

REPORT INFORMATION
  Report Type: Spontaneous
  Country: US (occurrence: US)
  Receive Date: 20170725
  Receipt Date: 20170725
  Transmission Date: 20171127
  Serious: No
  Sender: FDA-Public Use
  Company Number: US-CHIESI USA INC.-US-2016CHI001582

PATIENT
  Sex: Female

DRUGS (1)
  1. ZYFLO CR [Suspect]
     Active Substance: ZILEUTON
     Indication: ASTHMA
     Dosage: 600 MG, UNK
     Dates: start: 201609, end: 201610

REACTIONS (1)
  - Headache [Unknown]

NARRATIVE: CASE EVENT DATE: 20161004
